FAERS Safety Report 7711250-0 (Version None)
Quarter: 2011Q3

REPORT INFORMATION
  Report Type: 
  Country: None (occurrence: None)
  Receive Date: 20110826
  Receipt Date: 20110822
  Transmission Date: 20111222
  Serious: No
  Sender: FDA-Public Use
  Company Number: US-BIOGENIDEC-2011BI031960

PATIENT
  Sex: Female

DRUGS (3)
  1. AVONEX [Suspect]
     Route: 030
     Dates: start: 20050404, end: 20060306
  2. AVONEX [Suspect]
     Route: 030
     Dates: start: 20110820
  3. AVONEX [Suspect]
     Indication: MULTIPLE SCLEROSIS
     Route: 030
     Dates: start: 20080527

REACTIONS (3)
  - HEADACHE [None]
  - INFLUENZA LIKE ILLNESS [None]
  - NASAL CONGESTION [None]
